FAERS Safety Report 4267837-3 (Version None)
Quarter: 2004Q1

REPORT INFORMATION
  Report Type: 
  Country: None (occurrence: None)
  Receive Date: 20040109
  Receipt Date: 20031230
  Transmission Date: 20041129
  Serious: Yes (Hospitalization)
  Sender: FDA-Public Use
  Company Number: CH-GLAXOSMITHKLINE-B0318681A

PATIENT
  Age: 76 Year
  Sex: Male

DRUGS (9)
  1. ROSIGLITAZONE MALEATE [Suspect]
     Indication: DIABETES MELLITUS NON-INSULIN-DEPENDENT
     Dosage: 4MG PER DAY
     Route: 048
     Dates: end: 20031210
  2. GLYBURIDE [Suspect]
     Indication: DIABETES MELLITUS NON-INSULIN-DEPENDENT
     Dosage: 5MG THREE TIMES PER DAY
     Route: 048
     Dates: end: 20031210
  3. ACETYLSALICYLIC ACID SRT [Suspect]
     Indication: PROPHYLAXIS
     Dosage: 100MG PER DAY
     Route: 048
  4. DICLOFENAC SODIUM [Suspect]
     Dosage: 100MG PER DAY
     Route: 048
     Dates: start: 20031209
  5. ACEMETACIN [Suspect]
     Indication: DRUG USE FOR UNKNOWN INDICATION
     Dosage: 90MG PER DAY
     Route: 048
     Dates: start: 20031203
  6. ALFUZOSIN [Concomitant]
     Route: 048
  7. GINKO [Concomitant]
     Route: 048
  8. ATORVASTATIN [Concomitant]
     Dosage: 20MG PER DAY
     Route: 048
  9. TRAMADOL HCL [Concomitant]
     Dosage: 15DROP PER DAY
     Route: 048
     Dates: start: 20031209

REACTIONS (6)
  - DEPRESSED LEVEL OF CONSCIOUSNESS [None]
  - DRUG INTERACTION [None]
  - HYPOGLYCAEMIA [None]
  - MALAISE [None]
  - OVERDOSE [None]
  - TREATMENT NONCOMPLIANCE [None]
